FAERS Safety Report 18341824 (Version 1)
Quarter: 2020Q4

REPORT INFORMATION
  Report Type: Report from Study
  Country: None (occurrence: CA)
  Receive Date: 20201005
  Receipt Date: 20201005
  Transmission Date: 20210113
  Serious: Yes (Other)
  Sender: FDA-Public Use
  Company Number: CA-ABBVIE-20K-028-3587288-00

PATIENT
  Sex: Female

DRUGS (3)
  1. RINVOQ [Suspect]
     Active Substance: UPADACITINIB
     Indication: RHEUMATOID ARTHRITIS
     Route: 048
     Dates: end: 2020
  2. SULFATRIM [Concomitant]
     Active Substance: SULFAMETHOXAZOLE\TRIMETHOPRIM
     Indication: INFECTION PROPHYLAXIS
     Dosage: EVERY MONDAY, WEDNESDAY AND FRIDAY
     Dates: start: 202009
  3. RINVOQ [Suspect]
     Active Substance: UPADACITINIB
     Route: 048
     Dates: start: 2020

REACTIONS (11)
  - Fluid retention [Recovered/Resolved]
  - Contusion [Unknown]
  - Inflammation [Not Recovered/Not Resolved]
  - Arthropod bite [Unknown]
  - Infection [Unknown]
  - Induration [Recovered/Resolved]
  - Erythema [Recovered/Resolved]
  - Arthropod bite [Recovered/Resolved]
  - Pain [Recovered/Resolved]
  - Skin reaction [Recovered/Resolved]
  - Rheumatoid arthritis [Unknown]

NARRATIVE: CASE EVENT DATE: 2020
